FAERS Safety Report 6490350-X (Version None)
Quarter: 2009Q4

REPORT INFORMATION
  Report Type: 
  Country: None (occurrence: None)
  Receive Date: 20091124
  Receipt Date: 20090218
  Transmission Date: 20100525
  Serious: Yes (Hospitalization)
  Sender: FDA-Public Use
  Company Number: SPV1-2009-00387

PATIENT
  Age: 47 Year
  Sex: Female
  Weight: 71.2 kg

DRUGS (1)
  1. CARBATROL [Suspect]
     Indication: CONVULSION
     Dosage: 200 MG, 2X/DAY;BID, ORAL
     Route: 048
     Dates: start: 20070702, end: 20070716

REACTIONS (1)
  - STEVENS-JOHNSON SYNDROME [None]
